FAERS Safety Report 21904886 (Version 1)
Quarter: 2023Q1

REPORT INFORMATION
  Report Type: Spontaneous
  Country: US (occurrence: US)
  Receive Date: 20230124
  Receipt Date: 20230124
  Transmission Date: 20230418
  Serious: Yes (Hospitalization, Other)
  Sender: FDA-Public Use
  Company Number: US-FreseniusKabi-FK202300898

PATIENT
  Age: 24 Year
  Sex: Male

DRUGS (4)
  1. BUPIVACAINE [Suspect]
     Active Substance: BUPIVACAINE
     Indication: Hemiparesis
     Dosage: PUMP
     Route: 037
  2. BUPIVACAINE [Suspect]
     Active Substance: BUPIVACAINE
     Indication: Cerebral palsy
  3. BACLOFEN [Suspect]
     Active Substance: BACLOFEN
     Indication: Hemiparesis
     Dosage: PUMP
     Route: 037
  4. BACLOFEN [Suspect]
     Active Substance: BACLOFEN
     Indication: Cerebral palsy

REACTIONS (5)
  - Administration site extravasation [Recovering/Resolving]
  - Coma [Recovering/Resolving]
  - Device malfunction [Recovered/Resolved]
  - Overdose [Recovered/Resolved]
  - Local anaesthetic systemic toxicity [Recovering/Resolving]
